FAERS Safety Report 16956581 (Version 2)
Quarter: 2020Q1

REPORT INFORMATION
  Report Type: Spontaneous
  Country: DE (occurrence: DE)
  Receive Date: 20191024
  Receipt Date: 20200113
  Transmission Date: 20200409
  Serious: Yes (Other)
  Sender: FDA-Public Use
  Company Number: DE-NODEN PHARMA DAC_NOD-2019-000166

PATIENT
  Sex: Female

DRUGS (3)
  1. METOPROLOL. [Suspect]
     Active Substance: METOPROLOL
     Indication: HYPERTENSION
     Dosage: 50 MILLIGRAM, BID (1-0-1)
     Route: 065
     Dates: start: 201909
  2. RASILEZ [Suspect]
     Active Substance: ALISKIREN
     Indication: PRODUCT USED FOR UNKNOWN INDICATION
     Dosage: 150 MILLIGRAM
     Route: 065
  3. METOPROLOL. [Suspect]
     Active Substance: METOPROLOL
     Indication: CORONARY ARTERY DISEASE

REACTIONS (3)
  - Hyperhidrosis [Unknown]
  - Angina pectoris [Unknown]
  - Myalgia [Unknown]

NARRATIVE: CASE EVENT DATE: 201909
